FAERS Safety Report 9500590 (Version 1)
Quarter: 2013Q1

REPORT INFORMATION
  Report Type: Spontaneous
  Country: US (occurrence: None)
  Receive Date: 20130107
  Receipt Date: 20130107
  Transmission Date: 20140127
  Serious: No
  Sender: FDA-Public Use
  Company Number: PHHY2012US101190

PATIENT
  Age: 36 Year
  Sex: Female

DRUGS (11)
  1. GILENYA [Suspect]
     Indication: MULTIPLE SCLEROSIS
     Route: 048
     Dates: start: 20110504, end: 20120308
  2. CALCIUM WITH VITAMIN D (CALCIUM PHOSPHATE, CALCIUM SODIUM LACTATE, ERGOCALCIFEROL) [Concomitant]
  3. VITAMIN B12 (CYANOCOBALAMIN) [Concomitant]
  4. MAGNESIUM (MAGNESIUM) [Concomitant]
  5. FISH OIL (FISH OIL) [Concomitant]
  6. ESTROGEN NOS (ESTROGEN NOS) [Concomitant]
  7. MULTIVITAMINS (ASCORBIC ACID, ERGOCALCIFEROL, FOLIC ACID, NICOTINAMIDE, PANTHENOL, RETINOL, RIBOFLAVIN, THIAMINE HYDROCHLORIDE) [Concomitant]
  8. BIOTIN (BIOTIN) [Concomitant]
  9. CELEXA (CITALOPRAM HYDROBROMIDE) [Concomitant]
  10. HYDROCHLOROTHIAZIDE (HYDROCHLOROTHIAZIDE) [Concomitant]
  11. ANTIBIOTICS (NO INGREDIENTS/ SUBSTANCES) [Concomitant]

REACTIONS (2)
  - Fatigue [None]
  - Weight decreased [None]
